FAERS Safety Report 25536215 (Version 1)
Quarter: 2025Q3

REPORT INFORMATION
  Report Type: Report from Study
  Country: US (occurrence: US)
  Receive Date: 20250709
  Receipt Date: 20250709
  Transmission Date: 20251020
  Serious: No
  Sender: TG THERAPEUTICS
  Company Number: US-TG THERAPEUTICS INC.-TGT005081

PATIENT

DRUGS (6)
  1. UBLITUXIMAB [Suspect]
     Active Substance: UBLITUXIMAB
     Indication: Multiple sclerosis
     Route: 042
     Dates: start: 20241115, end: 20241115
  2. UBLITUXIMAB [Suspect]
     Active Substance: UBLITUXIMAB
     Route: 042
     Dates: start: 202412, end: 202412
  3. UBLITUXIMAB [Suspect]
     Active Substance: UBLITUXIMAB
     Route: 042
     Dates: start: 20250502, end: 20250502
  4. SYNTHROID [Concomitant]
     Active Substance: LEVOTHYROXINE SODIUM
     Indication: Product used for unknown indication
     Dosage: UNK, QD
  5. XARELTO [Concomitant]
     Active Substance: RIVAROXABAN
     Indication: Product used for unknown indication
     Dosage: UNK, QD
  6. VITAMINS NOS [Concomitant]
     Active Substance: VITAMINS
     Indication: Product used for unknown indication
     Dosage: UNK, QD

REACTIONS (4)
  - Infusion related reaction [Recovering/Resolving]
  - Arthralgia [Recovering/Resolving]
  - Musculoskeletal stiffness [Recovering/Resolving]
  - Joint stiffness [Recovering/Resolving]

NARRATIVE: CASE EVENT DATE: 20250503
